FAERS Safety Report 5867605-2 (Version None)
Quarter: 2008Q3

REPORT INFORMATION
  Report Type: 
  Country: None (occurrence: None)
  Receive Date: 20080902
  Receipt Date: 20071115
  Transmission Date: 20090109
  Serious: No
  Sender: FDA-Public Use
  Company Number: US-ABBOTT-07P-163-0425377-00

PATIENT
  Sex: Female
  Weight: 63.56 kg

DRUGS (6)
  1. DEPAKOTE ER [Suspect]
     Indication: EPILEPSY
     Route: 048
     Dates: start: 20071001, end: 20071101
  2. DEPAKOTE ER [Suspect]
     Route: 048
     Dates: start: 20071101
  3. PHENYTOIN [Concomitant]
     Indication: EPILEPSY
     Dates: start: 19560101
  4. RALOXIFENE HYDROCHLORIDE [Concomitant]
     Indication: DRUG USE FOR UNKNOWN INDICATION
  5. ASCORBIC ACID [Concomitant]
     Indication: DRUG USE FOR UNKNOWN INDICATION
  6. ERGOCALCIFEROL [Concomitant]
     Indication: DRUG USE FOR UNKNOWN INDICATION

REACTIONS (4)
  - BACK PAIN [None]
  - CONVULSION [None]
  - FALL [None]
  - NECK PAIN [None]
